FAERS Safety Report 16583664 (Version 1)
Quarter: 2019Q3

REPORT INFORMATION
  Report Type: Spontaneous
  Country: CA (occurrence: CA)
  Receive Date: 20190717
  Receipt Date: 20190717
  Transmission Date: 20191004
  Serious: Yes (Death, Hospitalization)
  Sender: FDA-Public Use
  Company Number: CA-AUROBINDO-AUR-APL-2019-039544

PATIENT

DRUGS (2)
  1. NEVIRAPINE. [Suspect]
     Active Substance: NEVIRAPINE
     Indication: HIV TEST POSITIVE
     Dosage: 400 MILLIGRAM, ONCE A DAY
     Route: 065
  2. TRUVADA [Concomitant]
     Active Substance: EMTRICITABINE\TENOFOVIR DISOPROXIL FUMARATE
     Indication: PRODUCT USED FOR UNKNOWN INDICATION
     Dosage: UNK
     Route: 065

REACTIONS (4)
  - Gamma-glutamyltransferase increased [Fatal]
  - Blood alkaline phosphatase increased [Fatal]
  - Liver disorder [Fatal]
  - Weight decreased [Fatal]
